FAERS Safety Report 12616090 (Version 2)
Quarter: 2016Q3

REPORT INFORMATION
  Report Type: Spontaneous
  Country: US (occurrence: US)
  Receive Date: 20160802
  Receipt Date: 20160808
  Transmission Date: 20161109
  Serious: Yes (Hospitalization, Other)
  Sender: FDA-Public Use
  Company Number: US-ELI_LILLY_AND_COMPANY-US201607009761

PATIENT
  Age: 87 Year
  Sex: Female

DRUGS (4)
  1. HUMALOG MIX75/25 [Suspect]
     Active Substance: INSULIN LISPRO
     Dosage: 50 U, EACH EVENING
     Route: 065
     Dates: start: 201601
  2. HUMALOG MIX75/25 [Suspect]
     Active Substance: INSULIN LISPRO
     Dosage: 56 U, EACH MORNING
     Route: 065
  3. HUMALOG MIX75/25 [Suspect]
     Active Substance: INSULIN LISPRO
     Indication: IMPAIRED INSULIN SECRETION
     Dosage: 62 U, EACH MORNING
     Route: 065
     Dates: start: 201601
  4. HUMALOG MIX75/25 [Suspect]
     Active Substance: INSULIN LISPRO
     Dosage: 42 U, EACH EVENING
     Route: 065

REACTIONS (14)
  - Renal disorder [Unknown]
  - Blood glucose abnormal [Unknown]
  - Emphysema [Unknown]
  - Asthma [Unknown]
  - Incorrect dose administered [Unknown]
  - Myocardial infarction [Unknown]
  - Blood glucose decreased [Unknown]
  - Cardiac failure [Unknown]
  - Blood glucose increased [Unknown]
  - Drug ineffective [Unknown]
  - Chronic obstructive pulmonary disease [Unknown]
  - Hypertension [Unknown]
  - Abnormal behaviour [Unknown]
  - Gout [Unknown]

NARRATIVE: CASE EVENT DATE: 20160720
